FAERS Safety Report 7867354-5 (Version None)
Quarter: 2011Q4

REPORT INFORMATION
  Report Type: 
  Country: None (occurrence: None)
  Receive Date: 20111028
  Receipt Date: 20111021
  Transmission Date: 20120403
  Serious: Yes (Hospitalization, Other)
  Sender: FDA-Public Use
  Company Number: JP-BRISTOL-MYERS SQUIBB COMPANY-16047326

PATIENT
  Age: 56 Year
  Sex: Male
  Weight: 54 kg

DRUGS (7)
  1. ABILIFY [Suspect]
     Indication: SCHIZOPHRENIA
     Dosage: TABLET
     Route: 048
     Dates: start: 20110825, end: 20110901
  2. ABILIFY [Suspect]
     Indication: SCHIZOPHRENIA
     Route: 048
     Dates: start: 20110824, end: 20110824
  3. LONASEN [Concomitant]
     Dosage: TABS
  4. ARTANE [Concomitant]
     Dosage: TABS
     Dates: start: 20110814, end: 20110901
  5. SILECE [Concomitant]
     Dosage: TABS
     Dates: start: 20110814, end: 20110901
  6. LORAZEPAM [Concomitant]
     Dosage: TABS
     Dates: start: 20110816, end: 20110901
  7. ZOLPIDEM [Concomitant]
     Dosage: TABS
     Dates: start: 20110816, end: 20110901

REACTIONS (2)
  - GASTRIC ULCER [None]
  - ILEUS PARALYTIC [None]
